FAERS Safety Report 18568682 (Version 1)
Quarter: 2020Q4

REPORT INFORMATION
  Report Type: Spontaneous
  Country: US (occurrence: US)
  Receive Date: 20201201
  Receipt Date: 20201201
  Transmission Date: 20210114
  Serious: No
  Sender: FDA-Public Use
  Company Number: None

PATIENT
  Sex: Female

DRUGS (1)
  1. PIQRAY [Suspect]
     Active Substance: ALPELISIB
     Indication: BREAST CANCER
     Route: 048
     Dates: start: 20201104

REACTIONS (6)
  - Rash [None]
  - Stomatitis [None]
  - Urinary tract infection [None]
  - Contusion [None]
  - Pyrexia [None]
  - Urticaria [None]
